FAERS Safety Report 21796113 (Version 1)
Quarter: 2022Q4

REPORT INFORMATION
  Report Type: Spontaneous
  Country: US (occurrence: None)
  Receive Date: 20221228
  Receipt Date: 20221228
  Transmission Date: 20230113
  Serious: Yes (Hospitalization)
  Sender: FDA-Public Use
  Company Number: None

PATIENT
  Sex: Female

DRUGS (1)
  1. SUNITINIB [Suspect]
     Active Substance: SUNITINIB
     Indication: Neuroendocrine tumour
     Dosage: OTHER QUANTITY : 37.5MG;?FREQUENCY : DAILY;?
     Route: 048

REACTIONS (1)
  - Hospitalisation [None]
